FAERS Safety Report 13160529 (Version 1)
Quarter: 2017Q1

REPORT INFORMATION
  Report Type: Spontaneous
  Country: US (occurrence: US)
  Receive Date: 20170129
  Receipt Date: 20170129
  Transmission Date: 20170428
  Serious: No
  Sender: FDA-Public Use
  Company Number: US-TEVA-729501ACC

PATIENT
  Age: 27 Year
  Sex: Female

DRUGS (6)
  1. LOW-ORGESTREL [Concomitant]
  2. MULTIVITAMIN [Concomitant]
     Active Substance: VITAMINS
  3. PROAIR HFA [Concomitant]
     Active Substance: ALBUTEROL SULFATE
  4. COPAXONE [Suspect]
     Active Substance: GLATIRAMER ACETATE
     Indication: MULTIPLE SCLEROSIS
     Route: 058
  5. VITAMIN B COMPLEX [Concomitant]
     Active Substance: CYANOCOBALAMIN\DEXPANTHENOL\NIACINAMIDE\PYRIDOXINE HYDROCHLORIDE\RIBOFLAVIN 5^-PHOSPHATE SODIUM\THIAMINE HYDROCHLORIDE\VITAMIN B COMPLEX
  6. B12 ACTIVE [Concomitant]

REACTIONS (2)
  - Chills [Unknown]
  - Flushing [Unknown]

NARRATIVE: CASE EVENT DATE: 201611
